FAERS Safety Report 7867490-3 (Version None)
Quarter: 2011Q4

REPORT INFORMATION
  Report Type: 
  Country: None (occurrence: None)
  Receive Date: 20111028
  Receipt Date: 20111018
  Transmission Date: 20120403
  Serious: Yes (Other)
  Sender: FDA-Public Use
  Company Number: PHFR2011GB05984

PATIENT

DRUGS (1)
  1. FEMARA [Suspect]

REACTIONS (1)
  - DYSPHAGIA [None]
